FAERS Safety Report 19520616 (Version 1)
Quarter: 2021Q3

REPORT INFORMATION
  Report Type: Spontaneous
  Country: IT (occurrence: IT)
  Receive Date: 20210712
  Receipt Date: 20210712
  Transmission Date: 20211014
  Serious: Yes (Other)
  Sender: FDA-Public Use
  Company Number: IT-SUN PHARMACEUTICAL INDUSTRIES LTD-2021R1-303636

PATIENT
  Age: 23 Year
  Sex: Female

DRUGS (4)
  1. LITHIUM. [Interacting]
     Active Substance: LITHIUM
     Indication: MENTAL DISORDER
     Dosage: 124.5 MILLIGRAM, OD
     Route: 065
  2. LORAZEPAM. [Suspect]
     Active Substance: LORAZEPAM
     Indication: MENTAL DISORDER
     Dosage: 1 MILLIGRAM, TID
     Route: 048
  3. CARBAMAZEPINE. [Interacting]
     Active Substance: CARBAMAZEPINE
     Indication: EPILEPSY
     Dosage: 300 MILLIGRAM, TID
     Route: 048
  4. LURASIDONE [Suspect]
     Active Substance: LURASIDONE
     Indication: MENTAL DISORDER
     Dosage: 74 MILLIGRAM, OD
     Route: 048

REACTIONS (2)
  - Drug interaction [Unknown]
  - Limbic encephalitis [Unknown]
